FAERS Safety Report 6183371-8 (Version None)
Quarter: 2009Q2

REPORT INFORMATION
  Report Type: 
  Country: None (occurrence: None)
  Receive Date: 20090506
  Receipt Date: 20090415
  Transmission Date: 20091009
  Serious: Yes (Other)
  Sender: FDA-Public Use
  Company Number: PAR_02963_2009

PATIENT
  Sex: Male

DRUGS (18)
  1. IBUPROFEN [Suspect]
     Indication: DRUG USE FOR UNKNOWN INDICATION
     Dosage: (1800 DF ORAL)
     Route: 048
     Dates: start: 20090210, end: 20090226
  2. IBUPROFEN [Suspect]
     Indication: DRUG USE FOR UNKNOWN INDICATION
     Dosage: (1200 MG ORAL)
     Route: 048
     Dates: start: 20090209, end: 20090209
  3. XARELTO (XARELTO - RIVAROXABAN) (NOT SPECIFIED) [Suspect]
     Indication: ANTICOAGULANT THERAPY
     Dosage: (10 MG ORAL)
     Route: 048
     Dates: start: 20090211, end: 20090226
  4. DIPIDOLOR [Concomitant]
  5. WUERZBERGER TROPF [Concomitant]
  6. METAMIZOL /06276702/ [Concomitant]
  7. ARCOXIA [Concomitant]
  8. PANTOZOL /01263202/ [Concomitant]
  9. ACETAMINOPHEN [Concomitant]
  10. VOMEX A /00019501/ [Concomitant]
  11. NAVOBAN [Concomitant]
  12. TUTOFUSIN [Concomitant]
  13. CEFAZOLIN [Concomitant]
  14. OXYGESIC [Concomitant]
  15. NOVALGIN /00169801/ [Concomitant]
  16. CLEXANE [Concomitant]
  17. MUSARIL [Concomitant]
  18. BISACODYL [Concomitant]

REACTIONS (4)
  - BLISTER [None]
  - HAEMATOMA [None]
  - HAEMORRHAGE [None]
  - WOUND SECRETION [None]
